FAERS Safety Report 13845575 (Version 1)
Quarter: 2017Q3

REPORT INFORMATION
  Report Type: Spontaneous
  Country: US (occurrence: US)
  Receive Date: 20170808
  Receipt Date: 20170808
  Transmission Date: 20171127
  Serious: No
  Sender: FDA-Public Use
  Company Number: US-ROCHE-796351

PATIENT
  Sex: Female
  Weight: 52.2 kg

DRUGS (1)
  1. BONIVA [Suspect]
     Active Substance: IBANDRONATE SODIUM
     Indication: PRODUCT USED FOR UNKNOWN INDICATION
     Dosage: FREQUENCY: MONTHLY
     Route: 048

REACTIONS (3)
  - Neck pain [Unknown]
  - Osteogenesis imperfecta [Unknown]
  - Arthralgia [Unknown]
